FAERS Safety Report 8202908 (Version 2)
Quarter: 2013Q1

REPORT INFORMATION
  Report Type: Spontaneous
  Country: PR (occurrence: US)
  Receive Date: 20111027
  Receipt Date: 20130211
  Transmission Date: 20140127
  Serious: Yes (Hospitalization)
  Sender: FDA-Public Use
  Company Number: PR-ASTRAZENECA-2011SE58227

PATIENT
  Age: 55 Year
  Sex: Female

DRUGS (2)
  1. CRESTOR [Suspect]
     Indication: BLOOD CHOLESTEROL INCREASED
     Route: 048
  2. CRESTOR [Suspect]
     Indication: BLOOD TRIGLYCERIDES INCREASED
     Route: 048

REACTIONS (8)
  - Urinary tract infection [Unknown]
  - Blood pressure increased [Unknown]
  - Back injury [Unknown]
  - Stress [Unknown]
  - Blood cholesterol abnormal [Unknown]
  - Nervousness [Unknown]
  - Blood cholesterol increased [Unknown]
  - Drug dose omission [Unknown]
